FAERS Safety Report 18452391 (Version 1)
Quarter: 2020Q4

REPORT INFORMATION
  Report Type: Spontaneous
  Country: JP (occurrence: JP)
  Receive Date: 20201102
  Receipt Date: 20201102
  Transmission Date: 20210114
  Serious: Yes (Hospitalization, Other)
  Sender: FDA-Public Use
  Company Number: JP-GLAXOSMITHKLINE-JP2020JPN213157

PATIENT
  Age: 6 Decade
  Sex: Female

DRUGS (7)
  1. BIPERIDEN [Concomitant]
     Active Substance: BIPERIDEN
     Indication: BIPOLAR DISORDER
     Dosage: 1 MG
     Route: 048
  2. LAMICTAL [Suspect]
     Active Substance: LAMOTRIGINE
     Indication: BIPOLAR DISORDER
     Dosage: 25 MG
     Route: 048
  3. LITHIUM CARBONATE. [Suspect]
     Active Substance: LITHIUM CARBONATE
     Indication: BIPOLAR DISORDER
     Dosage: 400 MG
     Route: 048
  4. ARIPIPRAZOLE. [Concomitant]
     Active Substance: ARIPIPRAZOLE
     Indication: BIPOLAR DISORDER
     Dosage: UNK
  5. ETIZOLAM [Concomitant]
     Active Substance: ETIZOLAM
     Indication: BIPOLAR DISORDER
     Dosage: 1 MG
     Route: 048
  6. RISPERIDONE. [Concomitant]
     Active Substance: RISPERIDONE
     Indication: BIPOLAR DISORDER
     Dosage: 2 MG
     Route: 048
  7. ESZOPICLONE. [Concomitant]
     Active Substance: ESZOPICLONE
     Indication: BIPOLAR DISORDER
     Dosage: 3 MG
     Route: 048

REACTIONS (14)
  - Subileus [Unknown]
  - Renal impairment [Unknown]
  - Epilepsy [Unknown]
  - Stupor [Unknown]
  - Mania [Unknown]
  - Genital haemorrhage [Unknown]
  - Dyskinesia [Unknown]
  - Toxicity to various agents [Unknown]
  - Tremor [Unknown]
  - Generalised tonic-clonic seizure [Recovering/Resolving]
  - Hallucination [Unknown]
  - Dissociative disorder [Unknown]
  - Endometrial cancer [Unknown]
  - Ileus [Unknown]
